FAERS Safety Report 12961868 (Version 5)
Quarter: 2021Q1

REPORT INFORMATION
  Report Type: Spontaneous
  Country: CA (occurrence: CA)
  Receive Date: 20161121
  Receipt Date: 20210218
  Transmission Date: 20210419
  Serious: Yes (Other)
  Sender: FDA-Public Use
  Company Number: CA-ASCEND THERAPEUTICS-1059868

PATIENT
  Age: 58 Year
  Sex: Female
  Weight: 51 kg

DRUGS (18)
  1. PROMETRIUM [Suspect]
     Active Substance: PROGESTERONE
     Route: 048
  2. ACTEMRA [Suspect]
     Active Substance: TOCILIZUMAB
     Route: 042
  3. ACTEMRA [Suspect]
     Active Substance: TOCILIZUMAB
     Route: 042
  4. RITUXAN [Suspect]
     Active Substance: RITUXIMAB
     Route: 042
  5. METHOTREXATE. [Concomitant]
     Active Substance: METHOTREXATE
     Route: 065
  6. METHYLPREDNISOLONE SODIUM SUCCINATE. [Concomitant]
     Active Substance: METHYLPREDNISOLONE SODIUM SUCCINATE
     Route: 065
     Dates: start: 20130718
  7. ACTEMRA [Suspect]
     Active Substance: TOCILIZUMAB
     Route: 042
     Dates: start: 20120815, end: 20121212
  8. ACTEMRA [Suspect]
     Active Substance: TOCILIZUMAB
     Route: 042
  9. ACTEMRA [Suspect]
     Active Substance: TOCILIZUMAB
     Route: 042
  10. ESTROGEL [Suspect]
     Active Substance: ESTRADIOL
     Indication: HORMONE REPLACEMENT THERAPY
     Route: 061
     Dates: start: 20130118
  11. RITUXAN [Suspect]
     Active Substance: RITUXIMAB
     Route: 042
  12. DIPHENHYDRAMINE HYDROCHLORIDE. [Concomitant]
     Active Substance: DIPHENHYDRAMINE HYDROCHLORIDE
     Route: 065
     Dates: start: 20130718
  13. PREDNISONE. [Concomitant]
     Active Substance: PREDNISONE
     Route: 065
  14. PROMETRIUM [Suspect]
     Active Substance: PROGESTERONE
     Route: 048
     Dates: start: 20130118
  15. ACETAMINOPHEN (PARACETAMOL) [Concomitant]
     Active Substance: ACETAMINOPHEN
     Route: 065
  16. FOLIC ACID. [Concomitant]
     Active Substance: FOLIC ACID
     Route: 065
  17. NEXIUM [Concomitant]
     Active Substance: ESOMEPRAZOLE MAGNESIUM
     Route: 065
  18. CELEBREX [Concomitant]
     Active Substance: CELECOXIB
     Route: 065

REACTIONS (11)
  - Dislocation of vertebra [Unknown]
  - Urticaria [Recovered/Resolved]
  - Rheumatoid arthritis [Unknown]
  - Foot fracture [Unknown]
  - Drug interaction [Unknown]
  - Ill-defined disorder [Unknown]
  - Kidney infection [Unknown]
  - Hot flush [Recovered/Resolved]
  - Muscular weakness [Unknown]
  - Drug ineffective [Unknown]
  - Road traffic accident [Unknown]

NARRATIVE: CASE EVENT DATE: 20140210
